FAERS Safety Report 12108938 (Version 10)
Quarter: 2017Q1

REPORT INFORMATION
  Report Type: Report from Study
  Country: CA (occurrence: CA)
  Receive Date: 20160224
  Receipt Date: 20170120
  Transmission Date: 20170428
  Serious: Yes (Other)
  Sender: FDA-Public Use
  Company Number: CA-ROCHE-1699382

PATIENT
  Age: 53 Year
  Sex: Female
  Weight: 162 kg

DRUGS (3)
  1. ACTEMRA [Suspect]
     Active Substance: TOCILIZUMAB
     Indication: RHEUMATOID ARTHRITIS
     Route: 042
     Dates: start: 20160121, end: 20160912
  2. TRINTELLIX [Concomitant]
     Active Substance: VORTIOXETINE HYDROBROMIDE
  3. PREDNISONE. [Suspect]
     Active Substance: PREDNISONE
     Indication: PRODUCT USED FOR UNKNOWN INDICATION
     Route: 065

REACTIONS (20)
  - Dehydration [Unknown]
  - Frequent bowel movements [Not Recovered/Not Resolved]
  - Dizziness [Recovered/Resolved]
  - Nausea [Recovering/Resolving]
  - Oxygen saturation decreased [Unknown]
  - Genital ulceration [Not Recovered/Not Resolved]
  - Drug hypersensitivity [Unknown]
  - Oropharyngeal pain [Recovered/Resolved]
  - Fatigue [Recovering/Resolving]
  - Abdominal pain lower [Recovered/Resolved]
  - Dyschezia [Not Recovered/Not Resolved]
  - Irritable bowel syndrome [Unknown]
  - Influenza [Unknown]
  - Gastrointestinal disorder [Recovered/Resolved]
  - Abdominal pain [Not Recovered/Not Resolved]
  - Diarrhoea [Not Recovered/Not Resolved]
  - Upper respiratory tract congestion [Recovering/Resolving]
  - Abdominal pain upper [Recovering/Resolving]
  - Lower respiratory tract congestion [Recovering/Resolving]
  - Malaise [Recovered/Resolved]

NARRATIVE: CASE EVENT DATE: 20160121
